FAERS Safety Report 13506184 (Version 1)
Quarter: 2017Q2

REPORT INFORMATION
  Report Type: Spontaneous
  Country: US (occurrence: US)
  Receive Date: 20170502
  Receipt Date: 20170502
  Transmission Date: 20170830
  Serious: Yes (Other)
  Sender: FDA-Public Use
  Company Number: US-ROCHE-1224597

PATIENT
  Sex: Male

DRUGS (3)
  1. GEMZAR [Concomitant]
     Active Substance: GEMCITABINE HYDROCHLORIDE
     Indication: RENAL CELL CARCINOMA
  2. XELODA [Suspect]
     Active Substance: CAPECITABINE
     Indication: RENAL CELL CARCINOMA
     Route: 065
     Dates: start: 20130418
  3. AVASTIN [Suspect]
     Active Substance: BEVACIZUMAB
     Indication: RENAL CELL CARCINOMA
     Route: 065
     Dates: start: 20130418

REACTIONS (4)
  - Mental impairment [Unknown]
  - Chest pain [Unknown]
  - Hypertension [Not Recovered/Not Resolved]
  - Full blood count decreased [Unknown]
